FAERS Safety Report 13041312 (Version 1)
Quarter: 2016Q4

REPORT INFORMATION
  Report Type: Report from Study
  Country: US (occurrence: US)
  Receive Date: 20161219
  Receipt Date: 20161219
  Transmission Date: 20170207
  Serious: Yes (Other)
  Sender: FDA-Public Use
  Company Number: US-MALLINCKRODT-T201606372

PATIENT
  Sex: Male

DRUGS (2)
  1. REPOSITORY CORTICOTROPIN INJECTION [Suspect]
     Active Substance: CORTICOTROPIN
     Indication: NEPHROTIC SYNDROME
  2. REPOSITORY CORTICOTROPIN INJECTION [Suspect]
     Active Substance: CORTICOTROPIN
     Indication: FOCAL SEGMENTAL GLOMERULOSCLEROSIS
     Dosage: 80 UNITS / 1 ML, 2 TIMES PER WEEK, MONDAYS AND THURSDAYS
     Route: 058
     Dates: start: 20160606

REACTIONS (5)
  - Upper limb fracture [Unknown]
  - Blood pressure fluctuation [Unknown]
  - Dizziness [Unknown]
  - Fluid imbalance [Unknown]
  - Fall [Unknown]

NARRATIVE: CASE EVENT DATE: 2016
